FAERS Safety Report 7687312-3 (Version None)
Quarter: 2011Q3

REPORT INFORMATION
  Report Type: 
  Country: None (occurrence: None)
  Receive Date: 20110816
  Receipt Date: 20110712
  Transmission Date: 20111222
  Serious: No
  Sender: FDA-Public Use
  Company Number: US-BAYER-2011-061718

PATIENT
  Age: 25 Year

DRUGS (8)
  1. IBUPROFEN [Suspect]
     Indication: HEADACHE
     Dosage: DAILY DOSE 10 DF
  2. AMBIEN [Concomitant]
     Indication: SINUSITIS
  3. TYLENOL WITH CODEIN #3 [Concomitant]
  4. ALEVE (CAPLET) [Suspect]
     Indication: HEADACHE
     Dosage: 10 TO 12 DOSE FORMS
     Route: 048
  5. NAPROXEN [Concomitant]
     Indication: HEADACHE
  6. EXCEDRIN (MIGRAINE) [Concomitant]
  7. TRAMADOL HCL [Concomitant]
     Indication: SINUSITIS
  8. ANTIBIOTICS [Concomitant]
     Indication: SINUSITIS

REACTIONS (1)
  - HEADACHE [None]
